FAERS Safety Report 20608987 (Version 3)
Quarter: 2022Q2

REPORT INFORMATION
  Report Type: Spontaneous
  Country: US (occurrence: US)
  Receive Date: 20220317
  Receipt Date: 20220405
  Transmission Date: 20220720
  Serious: Yes (Hospitalization, Other)
  Sender: FDA-Public Use
  Company Number: US-TEVA-2022-US-2016831

PATIENT
  Age: 19 Year
  Sex: Male

DRUGS (14)
  1. ETOPOSIDE [Suspect]
     Active Substance: ETOPOSIDE
     Indication: Precursor T-lymphoblastic lymphoma/leukaemia stage III
     Dosage: 100 MG/M2, DOSE ON DAYS 1-5- SECOND-LINE RE-INDUCTION THERAPY; ONLY ONE CYCLE GIVEN
     Route: 042
  2. FLUCONAZOLE [Suspect]
     Active Substance: FLUCONAZOLE
     Indication: Antifungal prophylaxis
     Route: 065
  3. CYTOXAN [Suspect]
     Active Substance: CYCLOPHOSPHAMIDE
     Indication: Precursor T-lymphoblastic lymphoma/leukaemia stage III
     Dosage: 1000 MG/M2, DOSE ON DAYS 1 AND 29- CONSOLIDATION THERAPY
     Route: 042
  4. CYTOXAN [Suspect]
     Active Substance: CYCLOPHOSPHAMIDE
     Dosage: 440 MG/M2, DOSE ON DAYS 1-5- AS SECOND-LINE RE-INDUCTION CHEMOTHERAPY; ONLY ONE CYCLE GIVEN
     Route: 042
  5. CYTARABINE [Suspect]
     Active Substance: CYTARABINE
     Indication: Precursor T-lymphoblastic lymphoma/leukaemia stage III
     Dosage: 75 MG/M2, DOSE ON DAYS 1-4, 8-11, 29-32, AND 36-39- CONSOLIDATION THERAPY
     Route: 042
  6. CYTARABINE [Suspect]
     Active Substance: CYTARABINE
     Dosage: 1 G/M2 /DOSE ON DAYS 1-4- AS SECOND SALVAGE THERAPY; ONLY ONE CYCLE GIVEN
     Route: 042
  7. MERCAPTOPURINE [Suspect]
     Active Substance: MERCAPTOPURINE
     Indication: Precursor T-lymphoblastic lymphoma/leukaemia stage III
     Dosage: 60 MG/M2, DOSE ON DAYS 1-14 AND 29-42- CONSOLIDATION THERAPY
     Route: 042
  8. NELARABINE [Suspect]
     Active Substance: NELARABINE
     Indication: Precursor T-lymphoblastic lymphoma/leukaemia stage III
     Dosage: 650 MG/M2, DOSE ON DAYS 1-5- SECOND-LINE RE-INDUCTION THERAPY; ONLY ONE CYCLE GIVEN
     Route: 042
  9. CLOFARABINE [Suspect]
     Active Substance: CLOFARABINE
     Indication: Precursor T-lymphoblastic lymphoma/leukaemia stage III
     Dosage: 52 MG/M2, DOSE ON DAYS 1-5 EVERY 28 D- FIRST SALVAGE THERAPY; ONLY ONE CYCLE GIVEN
     Route: 042
  10. MITOXANTRONE [Suspect]
     Active Substance: MITOXANTRONE HYDROCHLORIDE
     Indication: Precursor T-lymphoblastic lymphoma/leukaemia stage III
     Dosage: 12 MG/M2, DOSE ON DAYS 1-5 - THIRD SALVAGE THERAPY; ONLY ONE CYCLE GIVEN
     Route: 042
  11. VINCRISTINE [Concomitant]
     Active Substance: VINCRISTINE
     Indication: Precursor T-lymphoblastic lymphoma/leukaemia stage III
     Dosage: 1.5 MG/M2, DOSE ON DAYS 15, 22, 43, AND 50- CONSOLIDATION THERAPY
     Route: 042
  12. PEGASPARGASE [Concomitant]
     Active Substance: PEGASPARGASE
     Indication: Precursor T-lymphoblastic lymphoma/leukaemia stage III
     Dosage: 2500 INTERNATIONAL UNITS/M2 /DOSE*1 DOSE ON DAYS 15 AND 43- CONSOLIDATION THERAPY
     Route: 042
  13. DECITABINE [Concomitant]
     Active Substance: DECITABINE
     Indication: Precursor T-lymphoblastic lymphoma/leukaemia stage III
     Dosage: 20 MG/M2,DOSE ON DAYS 1-10; ONLY ONE CYCLE GIVEN
     Route: 042
  14. VENETOCLAX [Concomitant]
     Active Substance: VENETOCLAX
     Indication: Precursor T-lymphoblastic lymphoma/leukaemia stage III
     Dosage: 100 MG/M2, DOSE ON DAYS 1-21; ONLY ONE CYCLE GIVEN
     Route: 048

REACTIONS (2)
  - Myelosuppression [Unknown]
  - Drug ineffective [Unknown]
